FAERS Safety Report 6490823-X (Version None)
Quarter: 2009Q4

REPORT INFORMATION
  Report Type: 
  Country: None (occurrence: None)
  Receive Date: 20091211
  Receipt Date: 20091205
  Transmission Date: 20100525
  Serious: Yes (Other)
  Sender: FDA-Public Use
  Company Number: US-BRACCO-003823

PATIENT
  Sex: Female

DRUGS (3)
  1. SALINE [Suspect]
     Route: 061
     Dates: start: 20091130, end: 20091130
  2. PREDNISONE TAB [Concomitant]
     Route: 047
     Dates: start: 20091130
  3. ISOVUE-370 [Suspect]
     Route: 061
     Dates: start: 20091130, end: 20091130

REACTIONS (4)
  - ACCIDENTAL EXPOSURE [None]
  - ERYTHEMA [None]
  - EYE INJURY [None]
  - SWELLING [None]
